FAERS Safety Report 19310514 (Version 2)
Quarter: 2021Q2

REPORT INFORMATION
  Report Type: Spontaneous
  Country: FR (occurrence: FR)
  Receive Date: 20210526
  Receipt Date: 20210604
  Transmission Date: 20210717
  Serious: Yes (Other)
  Sender: FDA-Public Use
  Company Number: FR-PFIZER INC-2021553352

PATIENT
  Age: 39 Year

DRUGS (4)
  1. ALPRAZOLAM. [Suspect]
     Active Substance: ALPRAZOLAM
     Dosage: 8 DF, 1X/DAY (0.5 MG/D)
     Route: 048
  2. CANNABIS [Suspect]
     Active Substance: CANNABIS SATIVA SUBSP. INDICA TOP
     Dosage: 4 TO 5 JOINTS DAILY
     Route: 055
  3. ZYPREXA [Suspect]
     Active Substance: OLANZAPINE
     Dosage: 40 MG, 1X/DAY
     Route: 048
  4. EFFERALGAN CODEINE [Suspect]
     Active Substance: ACETAMINOPHEN\CODEINE PHOSPHATE
     Dosage: 6 DF, 1X/DAY
     Route: 048

REACTIONS (3)
  - Substance use disorder [Not Recovered/Not Resolved]
  - Overdose [Not Recovered/Not Resolved]
  - Drug use disorder [Not Recovered/Not Resolved]
